FAERS Safety Report 11645103 (Version 1)
Quarter: 2015Q4

REPORT INFORMATION
  Report Type: Spontaneous
  Country: US (occurrence: US)
  Receive Date: 20151020
  Receipt Date: 20151020
  Transmission Date: 20160304
  Serious: No
  Sender: FDA-Public Use
  Company Number: US-BAYER-2015-445604

PATIENT
  Age: 74 Year
  Sex: Female

DRUGS (2)
  1. MIRALAX [Suspect]
     Active Substance: POLYETHYLENE GLYCOL 3350
     Indication: CONSTIPATION
     Dosage: 0.5 TABLESPOON, QD
     Route: 048
     Dates: start: 2010
  2. MIRALAX [Suspect]
     Active Substance: POLYETHYLENE GLYCOL 3350
     Indication: CONSTIPATION
     Dosage: 1 TABLESPOON, QD
     Route: 048
     Dates: start: 2010

REACTIONS (4)
  - Product use issue [None]
  - Product use issue [None]
  - Intentional product use issue [None]
  - Intentional product misuse [None]

NARRATIVE: CASE EVENT DATE: 20151014
